FAERS Safety Report 22621186 (Version 3)
Quarter: 2023Q4

REPORT INFORMATION
  Report Type: Spontaneous
  Country: US (occurrence: US)
  Receive Date: 20230620
  Receipt Date: 20231106
  Transmission Date: 20240110
  Serious: No
  Sender: FDA-Public Use
  Company Number: US-PFIZER INC-PV202300106270

PATIENT
  Age: 58 Year
  Sex: Female
  Weight: 77.098 kg

DRUGS (2)
  1. XELJANZ XR [Suspect]
     Active Substance: TOFACITINIB CITRATE
     Indication: Ankylosing spondylitis
     Dosage: 11 MG, 1X/DAY
     Route: 048
     Dates: start: 202210, end: 20231012
  2. XELJANZ XR [Suspect]
     Active Substance: TOFACITINIB CITRATE
     Indication: Psoriasis

REACTIONS (5)
  - Drug monitoring procedure not performed [Unknown]
  - Drug ineffective [Unknown]
  - Pain [Unknown]
  - Glomerular filtration rate decreased [Unknown]
  - Hepatic enzyme increased [Unknown]

NARRATIVE: CASE EVENT DATE: 20230701
